FAERS Safety Report 8080301-9 (Version None)
Quarter: 2012Q1

REPORT INFORMATION
  Report Type: 
  Country: None (occurrence: None)
  Receive Date: 20120130
  Receipt Date: 20120126
  Transmission Date: 20120608
  Serious: Yes (Other)
  Sender: FDA-Public Use
  Company Number: JP-JNJFOC-20091204682

PATIENT
  Sex: Female
  Weight: 72 kg

DRUGS (7)
  1. DOXORUBICIN HCL [Suspect]
     Dosage: COURSE 2
     Route: 042
     Dates: start: 20091030, end: 20091030
  2. DEXAMETHASONE SODIUM PHOSPHATE [Concomitant]
     Route: 042
     Dates: start: 20091001, end: 20091001
  3. DOXORUBICIN HCL [Suspect]
     Dosage: COURSE 4
     Route: 042
     Dates: start: 20100119, end: 20100119
  4. DOXORUBICIN HCL [Suspect]
     Dosage: COURSE 3
     Route: 042
     Dates: start: 20091221, end: 20091221
  5. FERROUS CITRATE [Concomitant]
     Route: 048
     Dates: start: 20090311
  6. DOXORUBICIN HCL [Suspect]
     Indication: OVARIAN CANCER RECURRENT
     Dosage: COURSE 1
     Route: 042
     Dates: start: 20091001, end: 20091001
  7. DEXAMETHASONE SODIUM PHOSPHATE [Concomitant]
     Indication: PROPHYLAXIS
     Route: 042
     Dates: start: 20091127

REACTIONS (1)
  - HYPERTENSION [None]
